FAERS Safety Report 6424835-9 (Version None)
Quarter: 2009Q4

REPORT INFORMATION
  Report Type: 
  Country: None (occurrence: None)
  Receive Date: 20091103
  Receipt Date: 20091019
  Transmission Date: 20100525
  Serious: Yes (Hospitalization)
  Sender: FDA-Public Use
  Company Number: PHHY2009JP44975

PATIENT
  Age: 18 Year
  Sex: Female
  Weight: 53 kg

DRUGS (7)
  1. DIOVAN [Suspect]
     Indication: HYPERTENSION
     Route: 048
  2. VALACYCLOVIR [Suspect]
     Indication: HERPES ZOSTER
     Dosage: 300 MG, UNK
     Route: 048
     Dates: start: 20090617, end: 20090622
  3. ENALAPRIL [Suspect]
     Indication: HYPERTENSION
     Route: 048
  4. WARFARIN SODIUM [Concomitant]
     Indication: ANTIPHOSPHOLIPID SYNDROME
  5. PREDNISOLONE [Concomitant]
     Indication: IMMUNOSUPPRESSION
  6. AZATHIOPRINE [Concomitant]
     Indication: IMMUNOSUPPRESSION
  7. MIZORIBINE [Concomitant]
     Indication: IMMUNOSUPPRESSION

REACTIONS (9)
  - BLOOD CREATININE INCREASED [None]
  - BLOOD UREA INCREASED [None]
  - DECREASED APPETITE [None]
  - DEHYDRATION [None]
  - HERPES ZOSTER [None]
  - KIDNEY ENLARGEMENT [None]
  - MALAISE [None]
  - RENAL FAILURE ACUTE [None]
  - VOMITING [None]
